FAERS Safety Report 7022403-1 (Version None)
Quarter: 2010Q3

REPORT INFORMATION
  Report Type: 
  Country: None (occurrence: None)
  Receive Date: 20100930
  Receipt Date: 20100927
  Transmission Date: 20110219
  Serious: No
  Sender: FDA-Public Use
  Company Number: US-PFIZER INC-2010098471

PATIENT
  Sex: Female
  Weight: 68.027 kg

DRUGS (2)
  1. SOMAVERT [Suspect]
     Indication: ACROMEGALY
     Dosage: 10 MG, DAILY
     Dates: start: 20100614
  2. SYNTHROID [Concomitant]
     Dosage: UNK

REACTIONS (3)
  - BLOOD GROWTH HORMONE ABNORMAL [None]
  - INJECTION SITE REACTION [None]
  - INSULIN-LIKE GROWTH FACTOR DECREASED [None]
